FAERS Safety Report 6247710-1 (Version None)
Quarter: 2009Q2

REPORT INFORMATION
  Report Type: 
  Country: None (occurrence: None)
  Receive Date: 20090626
  Receipt Date: 20090616
  Transmission Date: 20091009
  Serious: Yes (Other)
  Sender: FDA-Public Use
  Company Number: PHEH2009US02157

PATIENT
  Sex: Female
  Weight: 101 kg

DRUGS (8)
  1. FEMARA [Suspect]
     Indication: BREAST CANCER
     Dosage: UNK
  2. LEVOTHYROXINE SODIUM [Concomitant]
     Dosage: 112 MCG DAILY
  3. AROMASIN [Concomitant]
     Dosage: 25 MCG DAILT
  4. SINGULAIR [Concomitant]
     Dosage: 10 MG, QD
  5. HYDROCHLOROTHIAZIDE [Concomitant]
  6. POTASSIUM CHLORIDE [Concomitant]
     Dosage: 20 MEQ, BID
  7. METROGEL [Concomitant]
     Dosage: TOPICALLY ONCE OR TWICE DAILY
  8. ALBUTEROL [Concomitant]
     Dosage: PRN

REACTIONS (9)
  - ARTHRALGIA [None]
  - DISTURBANCE IN ATTENTION [None]
  - DRUG HYPERSENSITIVITY [None]
  - DYSPHAGIA [None]
  - LETHARGY [None]
  - MEMORY IMPAIRMENT [None]
  - MUSCULOSKELETAL DISCOMFORT [None]
  - RIGHT VENTRICULAR FAILURE [None]
  - TINNITUS [None]
